FAERS Safety Report 16377843 (Version 1)
Quarter: 2019Q2

REPORT INFORMATION
  Report Type: Spontaneous
  Country: ES (occurrence: ES)
  Receive Date: 20190531
  Receipt Date: 20190531
  Transmission Date: 20190711
  Serious: Yes (Hospitalization)
  Sender: FDA-Public Use
  Company Number: ES-MYLANLABS-2019M1051048

PATIENT
  Age: 92 Year
  Sex: Female

DRUGS (5)
  1. AMOXICILLIN/CLAVULANIC ACID [Suspect]
     Active Substance: AMOXICILLIN\CLAVULANIC ACID
     Indication: SKIN NECROSIS
     Dosage: 500 MILLIGRAM, Q8H
     Route: 048
     Dates: start: 20180704, end: 20180707
  2. TRAMADOL. [Suspect]
     Active Substance: TRAMADOL
     Indication: NECROSIS
     Dosage: 50 MICROGRAM, Q8H
     Dates: start: 20180704, end: 20180707
  3. METAMIZOL                          /06276701/ [Concomitant]
     Active Substance: METAMIZOLE
     Indication: CELLULITIS
     Dosage: 575 MILLIGRAM, Q8H
     Dates: start: 20180605
  4. ACETYLSALICYLIC ACID [Concomitant]
     Active Substance: ASPIRIN
     Dosage: UNK
  5. FOLIC ACID. [Concomitant]
     Active Substance: FOLIC ACID

REACTIONS (2)
  - Vomiting [Recovered/Resolved]
  - Dehydration [Recovered/Resolved]

NARRATIVE: CASE EVENT DATE: 20180707
